FAERS Safety Report 21387557 (Version 1)
Quarter: 2022Q3

REPORT INFORMATION
  Report Type: Spontaneous
  Country: CN (occurrence: CN)
  Receive Date: 20220928
  Receipt Date: 20220928
  Transmission Date: 20221027
  Serious: Yes (Hospitalization)
  Sender: FDA-Public Use
  Company Number: CN-PFIZER INC-202201191882

PATIENT
  Age: 41 Year
  Sex: Male
  Weight: 72 kg

DRUGS (8)
  1. CYTARABINE [Suspect]
     Active Substance: CYTARABINE
     Indication: Acute monocytic leukaemia
     Dosage: 250 MG, 1X/DAY
     Route: 041
     Dates: start: 20220820, end: 20220827
  2. VORICONAZOLE [Suspect]
     Active Substance: VORICONAZOLE
     Indication: Infection
     Dosage: 400 MG, 2X/DAY
     Route: 041
     Dates: start: 20220828, end: 20220828
  3. VORICONAZOLE [Suspect]
     Active Substance: VORICONAZOLE
     Dosage: 250 ML, 2X/DAY
     Route: 041
     Dates: start: 20220829, end: 20220830
  4. IDARUBICIN HYDROCHLORIDE [Suspect]
     Active Substance: IDARUBICIN HYDROCHLORIDE
     Indication: Acute monocytic leukaemia
     Dosage: 20 MG, 1X/DAY
     Dates: start: 20220820, end: 20220823
  5. SODIUM CHLORIDE [Concomitant]
     Active Substance: SODIUM CHLORIDE
     Indication: Vehicle solution use
     Dosage: 500.000 ML, 1X/DAY
     Route: 041
     Dates: start: 20220820, end: 20220827
  6. SODIUM CHLORIDE [Concomitant]
     Active Substance: SODIUM CHLORIDE
     Indication: Vehicle solution use
     Dosage: 40.000 ML, 1X/DAY
     Dates: start: 20220820, end: 20220823
  7. SODIUM CHLORIDE [Concomitant]
     Active Substance: SODIUM CHLORIDE
     Dosage: 100.000 ML, 2X/DAY
     Route: 041
     Dates: start: 20220829, end: 20220830
  8. SODIUM CHLORIDE [Concomitant]
     Active Substance: SODIUM CHLORIDE
     Indication: Vehicle solution use
     Dosage: 250.000 ML, 1X/DAY
     Route: 041
     Dates: start: 20220828, end: 20220828

REACTIONS (2)
  - Myelosuppression [Recovering/Resolving]
  - Hallucination [Recovering/Resolving]

NARRATIVE: CASE EVENT DATE: 20220829
